FAERS Safety Report 18167772 (Version 1)
Quarter: 2020Q3

REPORT INFORMATION
  Report Type: Spontaneous
  Country: US (occurrence: US)
  Receive Date: 20200818
  Receipt Date: 20200818
  Transmission Date: 20201103
  Serious: No
  Sender: FDA-Public Use
  Company Number: US-OTSUKA-2020_011043

PATIENT
  Sex: Male

DRUGS (1)
  1. ARIPIPRAZOLE. [Suspect]
     Active Substance: ARIPIPRAZOLE
     Indication: SCHIZOAFFECTIVE DISORDER BIPOLAR TYPE
     Dosage: UNK
     Route: 065

REACTIONS (7)
  - Intrusive thoughts [Unknown]
  - Psychomotor hyperactivity [Unknown]
  - Agitation [Unknown]
  - Product use in unapproved indication [Unknown]
  - Catatonia [Unknown]
  - Abnormal behaviour [Unknown]
  - Staring [Unknown]
